FAERS Safety Report 16612682 (Version 1)
Quarter: 2019Q3

REPORT INFORMATION
  Report Type: Spontaneous
  Country: US (occurrence: US)
  Receive Date: 20190722
  Receipt Date: 20190722
  Transmission Date: 20191004
  Serious: No
  Sender: FDA-Public Use
  Company Number: None

PATIENT
  Age: 35 Year
  Sex: Female

DRUGS (2)
  1. ZELBORAF [Suspect]
     Active Substance: VEMURAFENIB
     Dates: start: 20190624
  2. COTELLIC [Suspect]
     Active Substance: COBIMETINIB
     Dates: start: 20190624

REACTIONS (4)
  - Nausea [None]
  - Vomiting [None]
  - Abdominal discomfort [None]
  - Headache [None]

NARRATIVE: CASE EVENT DATE: 20190722
